FAERS Safety Report 5473967-0 (Version None)
Quarter: 2007Q3

REPORT INFORMATION
  Report Type: 
  Country: None (occurrence: None)
  Receive Date: 20070904
  Receipt Date: 20070319
  Transmission Date: 20080115
  Serious: Yes (Other)
  Sender: FDA-Public Use
  Company Number: 2007023340

PATIENT
  Age: 57 Year
  Sex: Male
  Weight: 64.9 kg

DRUGS (4)
  1. CAVERJECT [Suspect]
     Indication: ERECTILE DYSFUNCTION
     Dosage: (10 MCG)
     Dates: start: 20070301
  2. ACETYLSALICYLIC ACID SRT [Concomitant]
  3. MULTIVITAMIN [Concomitant]
  4. ADDERALL XR (AMFETAMINE ASPARTATE, AMFETAMINE SULFATE, DEXAMPHETAMINE [Concomitant]

REACTIONS (5)
  - DRUG INEFFECTIVE [None]
  - ERECTION INCREASED [None]
  - POLLAKIURIA [None]
  - SWELLING [None]
  - URGE INCONTINENCE [None]
